FAERS Safety Report 13166221 (Version 1)
Quarter: 2017Q1

REPORT INFORMATION
  Report Type: Report from Study
  Country: DE (occurrence: DE)
  Receive Date: 20170131
  Receipt Date: 20170131
  Transmission Date: 20170428
  Serious: Yes (Life-Threatening, Hospitalization)
  Sender: FDA-Public Use
  Company Number: DE-ROCHE-1886708

PATIENT
  Age: 55 Year
  Sex: Female

DRUGS (4)
  1. TRASTUZUMAB [Suspect]
     Active Substance: TRASTUZUMAB
     Indication: BREAST CANCER
     Dosage: LAST DOSE PRIOR TO PNEUMONITIS DURING CHEMOTHERAPY: 15/DEC/2015.
     Route: 042
     Dates: start: 20150922, end: 20160105
  2. PERTUZUMAB [Suspect]
     Active Substance: PERTUZUMAB
     Indication: BREAST CANCER
     Dosage: LAST DOSE OF PERTUZUMAB 420 PRIOR TO PNEUMONITIS DURING CHEMOTHERAPY: 15/DEC/2015.
     Route: 042
     Dates: start: 20150922, end: 20160105
  3. MYOCET [Suspect]
     Active Substance: DOXORUBICIN
     Indication: BREAST CANCER
     Dosage: LAST DOSE PRIOR TO PNEUMONITIS DURING CHEMOTHERAPY: 29/DEC/2015
     Route: 042
     Dates: start: 20150922, end: 20160105
  4. PACLITAXEL. [Suspect]
     Active Substance: PACLITAXEL
     Indication: BREAST CANCER
     Dosage: LAST DOSE PRIOR TO PNEUMONITIS DURING CHEMOTHERAPY: 29/DEC/2015.
     Route: 042
     Dates: start: 20150922, end: 20160105

REACTIONS (1)
  - Pneumonitis [Recovered/Resolved]

NARRATIVE: CASE EVENT DATE: 20160105
